FAERS Safety Report 17174516 (Version 1)
Quarter: 2019Q4

REPORT INFORMATION
  Report Type: Report from Study
  Country: IT (occurrence: IT)
  Receive Date: 20191219
  Receipt Date: 20191219
  Transmission Date: 20200122
  Serious: Yes (Other)
  Sender: FDA-Public Use
  Company Number: IT-MYLANLABS-2019M1124791

PATIENT
  Age: 78 Year
  Sex: Male

DRUGS (12)
  1. FUROSEMIDE. [Suspect]
     Active Substance: FUROSEMIDE
     Indication: DIURETIC THERAPY
     Dosage: 275 MILLIGRAM, QD
     Route: 048
     Dates: start: 20110309
  2. LOBIVON [Concomitant]
     Active Substance: NEBIVOLOL HYDROCHLORIDE
  3. BISOPROLOL HEMIFUMARATE [Concomitant]
     Active Substance: BISOPROLOL FUMARATE
     Dosage: 1.25 MILLIGRAM
  4. HUMALOG [Concomitant]
     Active Substance: INSULIN LISPRO
     Dosage: 100 U/ML
  5. EUTIROX [Concomitant]
     Active Substance: LEVOTHYROXINE SODIUM
  6. KEPPRA [Concomitant]
     Active Substance: LEVETIRACETAM
  7. COUMADIN [Concomitant]
     Active Substance: WARFARIN SODIUM
     Dosage: UNK
  8. SIMVASTATINA EG [Concomitant]
     Dosage: UNK
  9. GLUCOBAY [Concomitant]
     Active Substance: ACARBOSE
  10. PANTORC [Concomitant]
     Active Substance: PANTOPRAZOLE SODIUM
  11. LANTUS [Concomitant]
     Active Substance: INSULIN GLARGINE
     Dosage: UNK
  12. LEDERFOLIN [Concomitant]
     Active Substance: LEUCOVORIN CALCIUM
     Dosage: UNK

REACTIONS (1)
  - Dehydration [Recovering/Resolving]

NARRATIVE: CASE EVENT DATE: 20190701
